FAERS Safety Report 17173086 (Version 1)
Quarter: 2019Q4

REPORT INFORMATION
  Report Type: Spontaneous
  Country: IT (occurrence: IT)
  Receive Date: 20191218
  Receipt Date: 20191218
  Transmission Date: 20200122
  Serious: Yes (Other)
  Sender: FDA-Public Use
  Company Number: NVSC2019IT066362

PATIENT
  Age: 75 Year
  Sex: Female

DRUGS (13)
  1. STILNOX [Interacting]
     Active Substance: ZOLPIDEM TARTRATE
     Indication: INSOMNIA
     Dosage: 10 MG, QD
     Route: 048
     Dates: start: 20190121, end: 20190124
  2. STILNOX [Interacting]
     Active Substance: ZOLPIDEM TARTRATE
     Dosage: 10 MG, QD
     Route: 048
     Dates: start: 20190124, end: 20190128
  3. DEPAKIN CHRONO [Interacting]
     Active Substance: VALPROIC ACID
     Dosage: 900 MG, QD
     Route: 048
     Dates: start: 20190124, end: 20190128
  4. TAVOR (SIMVASTATIN) [Interacting]
     Active Substance: SIMVASTATIN
     Indication: ANXIETY
     Dosage: 1 DF, QD
     Route: 048
     Dates: start: 20190128, end: 20190131
  5. DEPAKIN CHRONO [Interacting]
     Active Substance: VALPROIC ACID
     Dosage: 900 MG, QD
     Route: 048
     Dates: start: 20190128, end: 20190131
  6. CLOPIXOL [Suspect]
     Active Substance: ZUCLOPENTHIXOL
     Indication: PSYCHOTIC DISORDER
     Dosage: 1 DF, QD
     Route: 048
     Dates: start: 20190107, end: 20190121
  7. QUETIAPINE FUMARATE. [Interacting]
     Active Substance: QUETIAPINE FUMARATE
     Dosage: 25 MG, QD
     Route: 048
     Dates: start: 20190124, end: 20190128
  8. QUETIAPINE FUMARATE. [Interacting]
     Active Substance: QUETIAPINE FUMARATE
     Dosage: 25 MG, QD
     Route: 048
     Dates: start: 20190128, end: 20190131
  9. STILNOX [Interacting]
     Active Substance: ZOLPIDEM TARTRATE
     Dosage: 10 MG, QD
     Route: 048
     Dates: start: 20190128, end: 20190131
  10. TALOFEN [Interacting]
     Active Substance: PROMAZINE HYDROCHLORIDE
     Indication: PSYCHOTIC DISORDER
     Dosage: 10 GTT, QD
     Route: 048
     Dates: start: 20190121, end: 20190131
  11. QUETIAPINE FUMARATE. [Suspect]
     Active Substance: QUETIAPINE FUMARATE
     Indication: PSYCHOTIC DISORDER
     Dosage: 25 MG, QD
     Route: 048
     Dates: start: 20190121, end: 20190124
  12. DEPAKIN CHRONO [Interacting]
     Active Substance: VALPROIC ACID
     Indication: EPILEPSY
     Dosage: 900 MG, QD
     Route: 048
     Dates: start: 20190121, end: 20190124
  13. LEVOPRAID [LEVOSULPIRIDE] [Suspect]
     Active Substance: LEVOSULPIRIDE
     Indication: PSYCHOTIC DISORDER
     Route: 048
     Dates: start: 20190124, end: 20190128

REACTIONS (4)
  - Dysphagia [Recovering/Resolving]
  - Persecutory delusion [Recovering/Resolving]
  - Gait disturbance [Recovering/Resolving]
  - Bradyphrenia [Recovering/Resolving]

NARRATIVE: CASE EVENT DATE: 20190128
